FAERS Safety Report 20419836 (Version 1)
Quarter: 2022Q1

REPORT INFORMATION
  Report Type: Other
  Country: US (occurrence: None)
  Receive Date: 20220203
  Receipt Date: 20220203
  Transmission Date: 20220423
  Serious: Yes (Other)
  Sender: FDA-Public Use
  Company Number: US-ROCHE-3011242

PATIENT
  Sex: Male

DRUGS (12)
  1. CELLCEPT [Suspect]
     Active Substance: MYCOPHENOLATE MOFETIL
     Indication: Interstitial lung disease
     Dosage: 500 MG TABLETS
     Route: 048
     Dates: start: 20200115
  2. VENTOLIN [Concomitant]
     Active Substance: ALBUTEROL SULFATE
  3. IPRATROPIUM [Concomitant]
     Active Substance: IPRATROPIUM
  4. GUAIFENESIN [Concomitant]
     Active Substance: GUAIFENESIN
  5. FUROSEMIDE [Concomitant]
     Active Substance: FUROSEMIDE
  6. BUSPIRONE HCL [Concomitant]
     Active Substance: BUSPIRONE HYDROCHLORIDE
  7. GABAPENTIN [Concomitant]
     Active Substance: GABAPENTIN
  8. PAXIL [Concomitant]
     Active Substance: PAROXETINE HYDROCHLORIDE
  9. TAMSULOSIN [Concomitant]
     Active Substance: TAMSULOSIN
  10. METOCLOPRAMIDE [Concomitant]
     Active Substance: METOCLOPRAMIDE
  11. MIRTAZAPINE [Concomitant]
     Active Substance: MIRTAZAPINE
  12. MECLIZINE HYDROCHLORIDE [Concomitant]
     Active Substance: MECLIZINE HYDROCHLORIDE

REACTIONS (16)
  - Off label use [Unknown]
  - Interstitial lung disease [Unknown]
  - Bronchiectasis [Unknown]
  - Pneumonia [Unknown]
  - Pulmonary fibrosis [Unknown]
  - Chronic obstructive pulmonary disease [Unknown]
  - Bronchial hyperreactivity [Unknown]
  - Dyspnoea [Unknown]
  - Cough [Unknown]
  - Herpes zoster [Unknown]
  - Insomnia [Unknown]
  - Oxygen saturation decreased [Unknown]
  - Imaging procedure abnormal [Unknown]
  - Respiratory disorder [Unknown]
  - Oedema [Unknown]
  - Rales [Unknown]
